FAERS Safety Report 5330440-8 (Version None)
Quarter: 2007Q2

REPORT INFORMATION
  Report Type: 
  Country: None (occurrence: None)
  Receive Date: 20070521
  Receipt Date: 20070509
  Transmission Date: 20071010
  Serious: Yes (Other)
  Sender: FDA-Public Use
  Company Number: US-PFIZER INC-2007038038

PATIENT
  Sex: Male
  Weight: 107 kg

DRUGS (3)
  1. CHANTIX [Suspect]
     Indication: EX-SMOKER
     Dates: start: 20070101, end: 20070101
  2. ALL OTHER THERAPEUTIC PRODUCTS [Concomitant]
  3. ANTITHROMBOTIC AGENTS [Concomitant]

REACTIONS (2)
  - HEARING IMPAIRED [None]
  - HYPOAESTHESIA [None]
